FAERS Safety Report 7294634-7 (Version None)
Quarter: 2011Q1

REPORT INFORMATION
  Report Type: 
  Country: None (occurrence: None)
  Receive Date: 20110202
  Receipt Date: 20110124
  Transmission Date: 20110831
  Serious: Yes (Hospitalization)
  Sender: FDA-Public Use
  Company Number: 2010US003463

PATIENT
  Age: 9 Year
  Sex: Male
  Weight: 31 kg

DRUGS (1)
  1. TACROLIMUS [Suspect]
     Indication: DERMATITIS ATOPIC
     Dosage: 0.1%, UNKNOWN/D, TOPICAL
     Route: 061
     Dates: start: 20011201, end: 20050430

REACTIONS (2)
  - DERMATITIS ALLERGIC [None]
  - ECZEMA [None]
